FAERS Safety Report 4297965-8 (Version None)
Quarter: 2004Q1

REPORT INFORMATION
  Report Type: 
  Country: None (occurrence: None)
  Receive Date: 20040218
  Receipt Date: 20001222
  Transmission Date: 20041129
  Serious: Yes (Other)
  Sender: FDA-Public Use
  Company Number: US-BRISTOL-MYERS SQUIBB COMPANY-10660025

PATIENT
  Sex: Female

DRUGS (29)
  1. STADOL [Suspect]
     Indication: MIGRAINE
     Route: 045
     Dates: start: 19950101, end: 19970101
  2. LORTAB [Suspect]
  3. XANAX [Suspect]
  4. VISTARIL [Concomitant]
  5. LORCET-HD [Concomitant]
  6. SOMA [Concomitant]
  7. TYLENOL W/ CODEINE NO. 3 [Concomitant]
  8. DECADRON [Concomitant]
  9. LOTENSIN HCT [Concomitant]
  10. WYGESIC [Concomitant]
  11. DARVOCET-N 100 [Concomitant]
  12. FIORICET [Concomitant]
  13. FIORINAL [Concomitant]
  14. FLEXERIL [Concomitant]
  15. TORADOL [Concomitant]
  16. VALIUM [Concomitant]
  17. TRAZODONE HCL [Concomitant]
  18. CELEXA [Concomitant]
  19. SULINDAC [Concomitant]
  20. TALWIN NX [Concomitant]
  21. WELLBUTRIN SR [Concomitant]
  22. SEROQUEL [Concomitant]
  23. REMERON [Concomitant]
  24. ULTRAM [Concomitant]
  25. AMBIEN [Concomitant]
  26. IBUPROFEN [Concomitant]
  27. SKELAXIN [Concomitant]
  28. LIMBITROL [Concomitant]
  29. LORCET-HD [Concomitant]

REACTIONS (3)
  - DEPENDENCE [None]
  - DEPRESSION [None]
  - SUICIDAL IDEATION [None]
